FAERS Safety Report 5512422-6 (Version None)
Quarter: 2007Q4

REPORT INFORMATION
  Report Type: 
  Country: None (occurrence: None)
  Receive Date: 20071112
  Receipt Date: 20061020
  Transmission Date: 20080405
  Serious: No
  Sender: FDA-Public Use
  Company Number: A0624393A

PATIENT
  Age: 45 Year
  Sex: Male

DRUGS (3)
  1. AVANDAMET [Suspect]
     Dosage: 1TAB UNKNOWN
     Route: 048
     Dates: start: 20050801
  2. LISINOPRIL [Concomitant]
  3. AMBIEN [Concomitant]

REACTIONS (5)
  - ABDOMINAL DISTENSION [None]
  - CONSTIPATION [None]
  - FLATULENCE [None]
  - SWELLING [None]
  - WEIGHT INCREASED [None]
